FAERS Safety Report 20171966 (Version 2)
Quarter: 2022Q1

REPORT INFORMATION
  Report Type: Spontaneous
  Country: CA (occurrence: CA)
  Receive Date: 20211210
  Receipt Date: 20220211
  Transmission Date: 20220423
  Serious: Yes (Other)
  Sender: FDA-Public Use
  Company Number: CA-PFIZER INC-202101340999

PATIENT
  Age: 54 Year
  Sex: Male

DRUGS (1)
  1. CELECOXIB [Suspect]
     Active Substance: CELECOXIB
     Indication: Osteoarthritis
     Dosage: UNK
     Route: 048
     Dates: start: 2013

REACTIONS (5)
  - Gait inability [Unknown]
  - Pain [Unknown]
  - Drug ineffective [Not Recovered/Not Resolved]
  - Hypertension [Not Recovered/Not Resolved]
  - Loss of personal independence in daily activities [Unknown]

NARRATIVE: CASE EVENT DATE: 20210701
